FAERS Safety Report 12602349 (Version 3)
Quarter: 2016Q3

REPORT INFORMATION
  Report Type: Spontaneous
  Country: JP (occurrence: JP)
  Receive Date: 20160728
  Receipt Date: 20160901
  Transmission Date: 20161109
  Serious: Yes (Hospitalization, Other)
  Sender: FDA-Public Use
  Company Number: JP-009507513-1605JPN004408

PATIENT
  Age: 73 Year
  Sex: Male
  Weight: 56 kg

DRUGS (8)
  1. SOVALDI [Suspect]
     Active Substance: SOFOSBUVIR
     Dosage: 400 MG, PER 2 DAYS
     Route: 048
     Dates: start: 20160407, end: 20160414
  2. ITOROL [Concomitant]
     Active Substance: ISOSORBIDE MONONITRATE
     Indication: ANGINA PECTORIS
     Dosage: 40 MG, QD (DIVIDED DOSE FREQUENCY UNKNOWN)
     Route: 048
  3. LYRICA [Concomitant]
     Active Substance: PREGABALIN
     Indication: NEURALGIA
     Dosage: 150 MG, QD
     Route: 048
  4. REBETOL [Suspect]
     Active Substance: RIBAVIRIN
     Indication: HEPATITIS C
     Dosage: 800 MG, QD (DIVIDED DOSE, FREQUENCY UNKNOWN)
     Route: 048
     Dates: start: 20160205, end: 20160331
  5. SOVALDI [Suspect]
     Active Substance: SOFOSBUVIR
     Indication: HEPATITIS C
     Dosage: 400 MG, QD (DIVIDED DOSE, FREQUENCY UNKNOWN)
     Route: 048
     Dates: start: 20160205, end: 20160406
  6. DOPS [Concomitant]
     Active Substance: DROXIDOPA
     Indication: ORTHOSTATIC HYPOTENSION
     Dosage: 300 MG, QD (DIVIDED DOSE FREQUENCY UNKNOWN)
     Route: 048
  7. IFENPRODIL TARTRATE [Concomitant]
     Active Substance: IFENPRODIL TARTRATE
     Indication: CEREBRAL INFARCTION
     Dosage: 60 MG, QD (DIVIDED DOSE FREQUENCY UNKNOWN)
     Route: 048
  8. PROMAC (POLAPREZINC) [Concomitant]
     Active Substance: POLAPREZINC
     Indication: GASTRIC ULCER
     Dosage: 150 MG, QD (DIVIDED DOSE FREQUENCY UNKNOWN)
     Route: 048

REACTIONS (3)
  - Autoimmune haemolytic anaemia [Recovered/Resolved]
  - General physical health deterioration [Unknown]
  - Platelet count decreased [Recovering/Resolving]

NARRATIVE: CASE EVENT DATE: 20160317
